FAERS Safety Report 5490471-4 (Version None)
Quarter: 2007Q4

REPORT INFORMATION
  Report Type: 
  Country: None (occurrence: None)
  Receive Date: 20071019
  Receipt Date: 20071016
  Transmission Date: 20080405
  Serious: Yes (Life-Threatening, Hospitalization)
  Sender: FDA-Public Use
  Company Number: PHFR2007GB03021

PATIENT
  Age: 35 Year
  Sex: Male

DRUGS (6)
  1. DIOVAN [Suspect]
     Dosage: 40MGX 8 TABLETS
     Route: 048
     Dates: start: 20070818, end: 20070818
  2. ADALAT [Suspect]
     Dosage: 40 MG X 40 TABLETS
     Route: 048
     Dates: start: 20070818, end: 20070818
  3. ALLOPURINOL [Suspect]
     Dosage: 100 MG X 32 TABLETS
     Route: 048
     Dates: start: 20070818, end: 20070818
  4. CARVEDILOL [Suspect]
     Indication: SELF MUTILATION
     Dosage: 10 MG X 32 TABLETS
     Route: 048
     Dates: start: 20070818, end: 20070818
  5. OLMETEC [Suspect]
     Dosage: 20 MG X 74 TABLETS
     Route: 048
     Dates: start: 20070818, end: 20070818
  6. ALCOHOL [Concomitant]

REACTIONS (12)
  - BLOOD ALKALINE PHOSPHATASE DECREASED [None]
  - BLOOD LACTATE DEHYDROGENASE INCREASED [None]
  - FIBRIN INCREASED [None]
  - GASTROINTESTINAL TUBE INSERTION [None]
  - HEART RATE DECREASED [None]
  - HYPOTENSION [None]
  - OVERDOSE [None]
  - PARALYSIS [None]
  - RESPIRATORY RATE DECREASED [None]
  - SHOCK [None]
  - VOMITING [None]
  - WHITE BLOOD CELL COUNT INCREASED [None]
